FAERS Safety Report 4279360-0 (Version None)
Quarter: 2004Q1

REPORT INFORMATION
  Report Type: 
  Country: None (occurrence: None)
  Receive Date: 20040123
  Receipt Date: 20040114
  Transmission Date: 20041129
  Serious: Yes (Hospitalization)
  Sender: FDA-Public Use
  Company Number: US-JNJFOC-20040103056

PATIENT
  Age: 43 Year
  Sex: Female

DRUGS (4)
  1. TOPAMAX [Suspect]
     Indication: CONVULSION
     Dosage: 25 MG, IN 1 DAY, ORAL
     Route: 048
  2. COMPAZINE (PROCHLORPERAZINE EDISYLATE) UNSPECIFIED [Concomitant]
  3. ZANTAC (RANITIDINE HYDROCHLORIDE) UNSPECIFIED [Concomitant]
  4. ADVAIR DISKUS (SERETIDE MITE) UNSPECIFIED [Concomitant]

REACTIONS (1)
  - CONVULSION [None]
